FAERS Safety Report 9104310 (Version 1)
Quarter: 2013Q1

REPORT INFORMATION
  Report Type: Spontaneous
  Country: US (occurrence: US)
  Receive Date: 20130220
  Receipt Date: 20130220
  Transmission Date: 20140127
  Serious: No
  Sender: FDA-Public Use
  Company Number: US-ASTRAZENECA-2013SE09432

PATIENT
  Age: 63 Year
  Sex: Female
  Weight: 49.9 kg

DRUGS (5)
  1. SYMBICORT [Suspect]
     Indication: ASTHMA
     Dosage: 160/4.5, 2 PUFFS BID
     Route: 055
     Dates: start: 201301
  2. NEXIUM [Suspect]
     Indication: GASTROOESOPHAGEAL REFLUX DISEASE
     Route: 048
  3. PROVENTIL [Concomitant]
     Indication: ASTHMA
     Dosage: AS REQUIRED
     Route: 055
  4. SPIRIVA [Concomitant]
     Indication: CHRONIC OBSTRUCTIVE PULMONARY DISEASE
     Route: 055
  5. NICORETTE [Concomitant]
     Indication: SMOKING CESSATION THERAPY

REACTIONS (4)
  - Visual acuity reduced [Unknown]
  - Cough [Unknown]
  - Blood pressure increased [Unknown]
  - Oral candidiasis [Unknown]
